FAERS Safety Report 18505661 (Version 5)
Quarter: 2021Q3

REPORT INFORMATION
  Report Type: Spontaneous
  Country: NL (occurrence: NL)
  Receive Date: 20201116
  Receipt Date: 20210913
  Transmission Date: 20211014
  Serious: Yes (Hospitalization, Other)
  Sender: FDA-Public Use
  Company Number: NVSC2020NL297634

PATIENT
  Age: 33 Year
  Sex: Female

DRUGS (3)
  1. ALEMTUZUMAB [Suspect]
     Active Substance: ALEMTUZUMAB
     Indication: RELAPSING-REMITTING MULTIPLE SCLEROSIS
     Dosage: UNK
     Route: 042
     Dates: start: 20180409
  2. ALEMTUZUMAB [Suspect]
     Active Substance: ALEMTUZUMAB
     Dosage: UNK
     Route: 041
     Dates: start: 20190423
  3. TAFINLAR [Suspect]
     Active Substance: DABRAFENIB MESYLATE
     Indication: NEOPLASM PROPHYLAXIS
     Dosage: 2 CAPSULES, BID
     Route: 048
     Dates: start: 2020

REACTIONS (11)
  - Nasopharyngitis [Not Recovered/Not Resolved]
  - Malignant melanoma [Recovered/Resolved]
  - Thyroid function test abnormal [Not Recovered/Not Resolved]
  - Multiple sclerosis [Unknown]
  - White blood cell count abnormal [Unknown]
  - Asthenia [Not Recovered/Not Resolved]
  - Pyrexia [Recovered/Resolved]
  - Gait disturbance [Unknown]
  - Poor venous access [Unknown]
  - Cystitis [Recovered/Resolved]
  - Malignant melanoma stage III [Recovered/Resolved]

NARRATIVE: CASE EVENT DATE: 201911
